FAERS Safety Report 9355752 (Version 1)
Quarter: 2013Q2

REPORT INFORMATION
  Report Type: Not Available
  Country: US (occurrence: US)
  Receive Date: 20130619
  Receipt Date: 20130619
  Transmission Date: 20140414
  Serious: Yes (Other)
  Sender: FDA-Public Use
  Company Number: US-LUPIN PHARMACEUTICALS INC.-E2B_00000959

PATIENT
  Age: 2 Year
  Sex: Male

DRUGS (3)
  1. CEFDINIR FORORAL SUSPENSION USP 125 MG/5 ML [Suspect]
     Indication: INFECTION
     Dates: start: 20130606, end: 20130607
  2. INSULIN ISOPHANE (HUMULIN N) [Concomitant]
     Indication: DIABETES MELLITUS
     Dosage: UP TO 10 UNITS
     Route: 058
  3. INSULIN LISPRO (HUMALOG) [Concomitant]
     Indication: DIABETES MELLITUS
     Dosage: UP TO 10 UNITS
     Route: 058

REACTIONS (1)
  - Blood glucose increased [Unknown]
